FAERS Safety Report 12710104 (Version 1)
Quarter: 2016Q3

REPORT INFORMATION
  Report Type: Other
  Country: SA (occurrence: SA)
  Receive Date: 20160902
  Receipt Date: 20160902
  Transmission Date: 20161109
  Serious: Yes (Life-Threatening)
  Sender: FDA-Public Use
  Company Number: SA-ORCHID HEALTHCARE-1056975

PATIENT
  Age: 50 Year
  Sex: Female
  Weight: 104 kg

DRUGS (1)
  1. GRANISETRON HYDROCHLORIDE. [Suspect]
     Active Substance: GRANISETRON HYDROCHLORIDE
     Indication: PROPHYLAXIS OF NAUSEA AND VOMITING
     Route: 042

REACTIONS (3)
  - Electrocardiogram QT prolonged [None]
  - Cardiac arrest [Recovered/Resolved]
  - Atrioventricular block first degree [None]
